FAERS Safety Report 21958460 (Version 1)
Quarter: 2023Q1

REPORT INFORMATION
  Report Type: Spontaneous
  Country: ES (occurrence: ES)
  Receive Date: 20230206
  Receipt Date: 20230206
  Transmission Date: 20230418
  Serious: Yes (Hospitalization)
  Sender: FDA-Public Use
  Company Number: None

PATIENT
  Age: 86 Year
  Sex: Female

DRUGS (2)
  1. LINEZOLID [Suspect]
     Active Substance: LINEZOLID
     Indication: Soft tissue infection
     Dosage: 1200 MILLIGRAM DAILY; (1279A)
     Route: 065
     Dates: start: 20221201, end: 20221207
  2. PIPERACILLIN SODIUM\TAZOBACTAM SODIUM [Suspect]
     Active Substance: PIPERACILLIN SODIUM\TAZOBACTAM SODIUM
     Indication: Soft tissue infection
     Dosage: 3 DOSAGE FORMS DAILY; 4G/500MG EVERY 8 HOURS, STRENGTH : 4/0.5 G, EFG, 1 VIAL
     Route: 065
     Dates: start: 20221201, end: 20221207

REACTIONS (3)
  - Bicytopenia [Recovering/Resolving]
  - Leukopenia [Recovering/Resolving]
  - Thrombocytopenia [Recovered/Resolved]

NARRATIVE: CASE EVENT DATE: 20221207
